FAERS Safety Report 21908022 (Version 4)
Quarter: 2023Q1

REPORT INFORMATION
  Report Type: Spontaneous
  Country: ES (occurrence: ES)
  Receive Date: 20230125
  Receipt Date: 20230317
  Transmission Date: 20230418
  Serious: Yes (Other)
  Sender: FDA-Public Use
  Company Number: ES-BAYER-2023A009299

PATIENT
  Sex: Male

DRUGS (1)
  1. EYLEA [Suspect]
     Active Substance: AFLIBERCEPT
     Indication: Diabetic retinal oedema
     Dosage: BOTH EYES, 5 INJECTIONS PRIOR TO EVENT, SOLUTION FOR INJECTION, 40 MG/ML
     Dates: end: 202301

REACTIONS (3)
  - Blindness unilateral [Recovering/Resolving]
  - Iritis [Unknown]
  - Corneal striae [Recovered/Resolved]

NARRATIVE: CASE EVENT DATE: 20230113
